FAERS Safety Report 7307726-0 (Version None)
Quarter: 2011Q1

REPORT INFORMATION
  Report Type: 
  Country: None (occurrence: None)
  Receive Date: 20110209
  Receipt Date: 20110124
  Transmission Date: 20110831
  Serious: Yes (Death)
  Sender: FDA-Public Use
  Company Number: 2011S1000040

PATIENT
  Age: 19 Year
  Sex: Male

DRUGS (4)
  1. CLONAZEPAM [Suspect]
     Dosage: ;PO
     Route: 048
  2. ROXICODONE [Suspect]
     Dosage: ;PO
     Route: 048
     Dates: end: 20090101
  3. METHADONE [Suspect]
     Dosage: ;PO
     Route: 048
  4. ZOLPIDEM [Suspect]
     Dosage: ;PO
     Route: 048

REACTIONS (1)
  - COMPLETED SUICIDE [None]
